FAERS Safety Report 9732860 (Version 1)
Quarter: 2013Q4

REPORT INFORMATION
  Report Type: Spontaneous
  Country: JP (occurrence: JP)
  Receive Date: 20131205
  Receipt Date: 20131205
  Transmission Date: 20140711
  Serious: Yes (Other)
  Sender: FDA-Public Use
  Company Number: JP-BRISTOL-MYERS SQUIBB COMPANY-19878099

PATIENT
  Sex: Female

DRUGS (1)
  1. PARAPLATIN INJ [Suspect]
     Route: 042

REACTIONS (2)
  - Renal failure acute [Unknown]
  - Renal tubular necrosis [Unknown]
